FAERS Safety Report 16670229 (Version 1)
Quarter: 2019Q3

REPORT INFORMATION
  Report Type: Spontaneous
  Country: FR (occurrence: FR)
  Receive Date: 20190805
  Receipt Date: 20190805
  Transmission Date: 20191004
  Serious: Yes (Life-Threatening)
  Sender: FDA-Public Use
  Company Number: FR-PFIZER INC-2019329424

PATIENT
  Age: 32 Year
  Sex: Female
  Weight: 87 kg

DRUGS (10)
  1. VINCRISTINE HOSPIRA [Suspect]
     Active Substance: VINCRISTINE
     Indication: HODGKIN^S DISEASE
     Dosage: 1.4 MG/M2, SINGLE
     Route: 041
     Dates: start: 20190703, end: 20190703
  2. GRANOCYTE [Concomitant]
     Active Substance: LENOGRASTIM
  3. CORTANCYL [Concomitant]
     Active Substance: PREDNISONE
  4. NATULAN [Suspect]
     Active Substance: PROCARBAZINE HYDROCHLORIDE
     Indication: HODGKIN^S DISEASE
     Dosage: 200 MG, 1X/DAY
     Route: 048
     Dates: start: 20190626, end: 20190702
  5. ETOPOPHOS [Suspect]
     Active Substance: ETOPOSIDE PHOSPHATE
     Indication: HODGKIN^S DISEASE
     Dosage: 200 MG/M2, SINGLE
     Route: 041
     Dates: start: 20190626, end: 20190626
  6. ZELITREX [Suspect]
     Active Substance: VALACYCLOVIR HYDROCHLORIDE
     Indication: INFECTION PROPHYLAXIS
     Dosage: 1 DF, 1X/DAY
     Route: 048
     Dates: start: 20190605, end: 20190707
  7. ENDOXAN [CYCLOPHOSPHAMIDE] [Suspect]
     Active Substance: CYCLOPHOSPHAMIDE
     Indication: HODGKIN^S DISEASE
     Dosage: 125 MG/M2, SINGLE
     Route: 041
     Dates: start: 20190626, end: 20190626
  8. BACTRIM [Concomitant]
     Active Substance: SULFAMETHOXAZOLE\TRIMETHOPRIM
  9. DOXORUBICINE ACCORD [Suspect]
     Active Substance: DOXORUBICIN
     Indication: HODGKIN^S DISEASE
     Dosage: 35 MG/M2, SINGLE
     Route: 041
     Dates: start: 20190626, end: 20190626
  10. BLEOMYCINE BELLON [Suspect]
     Active Substance: BLEOMYCIN SULFATE
     Indication: HODGKIN^S DISEASE
     Dosage: 10 MG/M2, SINGLE
     Route: 041
     Dates: start: 20190703, end: 20190703

REACTIONS (3)
  - Bone marrow failure [Recovered/Resolved]
  - Seizure [Recovered/Resolved]
  - Coma [Recovered/Resolved]

NARRATIVE: CASE EVENT DATE: 20190707
